FAERS Safety Report 24552934 (Version 1)
Quarter: 2024Q4

REPORT INFORMATION
  Report Type: Report from Study
  Country: DE (occurrence: DE)
  Receive Date: 20241027
  Receipt Date: 20241027
  Transmission Date: 20250114
  Serious: Yes (Hospitalization)
  Sender: SANOFI AVENTIS
  Company Number: DE-SA-SAC20240215000934

PATIENT
  Age: 56 Year
  Sex: Male
  Weight: 81 kg

DRUGS (52)
  1. ISATUXIMAB [Suspect]
     Active Substance: ISATUXIMAB
     Indication: Plasma cell myeloma refractory
     Dosage: 800 MG, QW
     Route: 065
     Dates: start: 20221227, end: 20230119
  2. ISATUXIMAB [Suspect]
     Active Substance: ISATUXIMAB
     Dosage: 800 MG, BIW
     Dates: start: 20230124, end: 20230207
  3. ISATUXIMAB [Suspect]
     Active Substance: ISATUXIMAB
     Dosage: 800 MG, BIW
     Dates: start: 20230221, end: 20230307
  4. ISATUXIMAB [Suspect]
     Active Substance: ISATUXIMAB
     Dosage: 800 MG, BIW
     Dates: start: 20230321, end: 20230407
  5. ISATUXIMAB [Suspect]
     Active Substance: ISATUXIMAB
     Dosage: 800 MG, BIW
     Dates: start: 20230418, end: 20230502
  6. ISATUXIMAB [Suspect]
     Active Substance: ISATUXIMAB
     Dosage: 800 MG, BIW
     Dates: start: 20230516, end: 20230605
  7. ISATUXIMAB [Suspect]
     Active Substance: ISATUXIMAB
     Dosage: 800 MG, BIW
     Dates: start: 20230619, end: 20230703
  8. ISATUXIMAB [Suspect]
     Active Substance: ISATUXIMAB
     Dosage: 800 MG, BIW
     Dates: start: 20230717, end: 20230731
  9. ISATUXIMAB [Suspect]
     Active Substance: ISATUXIMAB
     Dosage: 800 MG, BIW
     Dates: start: 20230814, end: 20230828
  10. ISATUXIMAB [Suspect]
     Active Substance: ISATUXIMAB
     Dosage: 800 MG, BIW
     Dates: start: 20230911, end: 20230925
  11. ISATUXIMAB [Suspect]
     Active Substance: ISATUXIMAB
     Dosage: 800 MG, BIW
     Dates: start: 20240115, end: 20240130
  12. ISATUXIMAB [Suspect]
     Active Substance: ISATUXIMAB
     Dosage: 800 MG, BIW
     Dates: start: 20240212, end: 20240213
  13. DEXAMETHASONE [Suspect]
     Active Substance: DEXAMETHASONE
     Indication: Plasma cell myeloma refractory
     Dosage: 20 MG, 6 TIMES (1,2,8,9,15,16)
     Route: 065
     Dates: start: 20221227, end: 20230112
  14. DEXAMETHASONE [Suspect]
     Active Substance: DEXAMETHASONE
     Dosage: 20 MG, 6 TIMES (1,2,8,9,15,16)
     Dates: start: 20230124, end: 20230208
  15. DEXAMETHASONE [Suspect]
     Active Substance: DEXAMETHASONE
     Dosage: 20 MG , 6 TIMES (1,2,8,9,15,16)
     Dates: start: 20230221, end: 20230308
  16. DEXAMETHASONE [Suspect]
     Active Substance: DEXAMETHASONE
     Dosage: 20 MG , 6 TIMES (1,2,8,9,15,16)
     Dates: start: 20230321, end: 20230405
  17. DEXAMETHASONE [Suspect]
     Active Substance: DEXAMETHASONE
     Dosage: 20 MG , 6 TIMES (1,2,8,9,15,16)
     Dates: start: 20230418, end: 20230503
  18. DEXAMETHASONE [Suspect]
     Active Substance: DEXAMETHASONE
     Dosage: 20 MG , 6 TIMES (1,2,8,9,15,16)
     Dates: start: 20230516, end: 20230606
  19. DEXAMETHASONE [Suspect]
     Active Substance: DEXAMETHASONE
     Dosage: 20 MG , 6 TIMES (1,2,8,9,15,16,22,23)
     Dates: start: 20230619, end: 20230711
  20. DEXAMETHASONE [Suspect]
     Active Substance: DEXAMETHASONE
     Dosage: 20 MG , 6 TIMES (1,2,8,9,15,16,22,23)
     Dates: start: 20230717, end: 20230808
  21. DEXAMETHASONE [Suspect]
     Active Substance: DEXAMETHASONE
     Dosage: 20 MG , 6 TIMES (1,2,8,9,15,16,22,23)
     Dates: start: 20230814, end: 20230905
  22. DEXAMETHASONE [Suspect]
     Active Substance: DEXAMETHASONE
     Dosage: 20 MG, 6 TIMES
     Dates: start: 20230911, end: 20230926
  23. DEXAMETHASONE [Suspect]
     Active Substance: DEXAMETHASONE
     Dosage: 20 MG, 8 TIMES(1,2,8,9,15,16,22,23)
     Dates: start: 20240115, end: 20240207
  24. DEXAMETHASONE [Suspect]
     Active Substance: DEXAMETHASONE
     Dosage: 20 MG, 8TIMES 91,2,8,9,15,16,22,23)
     Dates: start: 20240212, end: 20240213
  25. CARFILZOMIB [Suspect]
     Active Substance: CARFILZOMIB
     Indication: Plasma cell myeloma refractory
     Dosage: 39 MG, 2 TIMES
     Route: 065
     Dates: start: 20221227, end: 20221228
  26. CARFILZOMIB [Suspect]
     Active Substance: CARFILZOMIB
     Dosage: 82 MG, 4 TIMES ( 8,9,15,16)
     Dates: start: 20230103, end: 20230112
  27. CARFILZOMIB [Suspect]
     Active Substance: CARFILZOMIB
     Dosage: 110 MG,6 TIMES ( 1,2,8,9,15,16)
     Dates: start: 20230124, end: 20230208
  28. CARFILZOMIB [Suspect]
     Active Substance: CARFILZOMIB
     Dosage: 110 MG, 6 TIMES ( 1, 2, 8, 9,15,16)
     Dates: start: 20230221, end: 20230308
  29. CARFILZOMIB [Suspect]
     Active Substance: CARFILZOMIB
     Dosage: 110 MG, 6 TIMES (1,2,8,9,15,16)
     Dates: start: 20230418, end: 20230503
  30. CARFILZOMIB [Suspect]
     Active Substance: CARFILZOMIB
     Dosage: 110 MG,6 TIMES (1,2,8,9,15,16)
     Dates: start: 20230516, end: 20230606
  31. CARFILZOMIB [Suspect]
     Active Substance: CARFILZOMIB
     Dosage: 110 MG, 6 TIMES (1,2,8,9,15,16)
     Dates: start: 20230619, end: 20230704
  32. CARFILZOMIB [Suspect]
     Active Substance: CARFILZOMIB
     Dosage: 110 MG, 6 TIMES (1,2,8,9,15,16)
     Dates: start: 20230717, end: 20230801
  33. CARFILZOMIB [Suspect]
     Active Substance: CARFILZOMIB
     Dosage: 110 MG, 8 TIMES (1,2,8,9,15,16)
     Dates: start: 20230814, end: 20230829
  34. CARFILZOMIB [Suspect]
     Active Substance: CARFILZOMIB
     Dosage: 110 MG, 6 TIMES(1,2,8,9,15,16)
     Dates: start: 20230911, end: 20230926
  35. CARFILZOMIB [Suspect]
     Active Substance: CARFILZOMIB
     Dosage: 11 MG, 6 TIMES (1,2,8,9,15,16)
     Dates: start: 20240115, end: 20240131
  36. CARFILZOMIB [Suspect]
     Active Substance: CARFILZOMIB
     Dosage: 110 MG, 6 TIMES(1,2,8,9,15,16)
     Dates: start: 20240212, end: 20240213
  37. CLEMASTINE [Concomitant]
     Active Substance: CLEMASTINE
     Indication: Prophylaxis
     Dosage: UNK
     Dates: start: 20221227
  38. MONTELUKAST [Concomitant]
     Active Substance: MONTELUKAST
     Indication: Prophylaxis
     Dosage: UNK
     Dates: start: 20221227
  39. LERCANIDIPINE [Concomitant]
     Active Substance: LERCANIDIPINE
     Dosage: UNK
  40. TELMISARTAN [Concomitant]
     Active Substance: TELMISARTAN
     Dosage: UNK
  41. INDAPAMIDE [Concomitant]
     Active Substance: INDAPAMIDE
     Dosage: UNK
  42. ATORVASTATIN [Concomitant]
     Active Substance: ATORVASTATIN
     Dosage: UNK
     Dates: start: 202107
  43. CHOLECALCIFEROL [Concomitant]
     Active Substance: CHOLECALCIFEROL
     Dosage: UNK
  44. COBALAMIN [Concomitant]
     Active Substance: COBALAMIN
     Dosage: UNK
     Dates: start: 2023
  45. KEPPRA [Concomitant]
     Active Substance: LEVETIRACETAM
     Dosage: UNK
     Dates: start: 202310
  46. ALBUTEROL [Concomitant]
     Active Substance: ALBUTEROL
     Dosage: UNK
     Dates: start: 20231007
  47. MARCUMAR [Concomitant]
     Active Substance: PHENPROCOUMON
     Dosage: UNK
     Dates: start: 202310
  48. MELPERONE [Concomitant]
     Active Substance: MELPERONE
     Dosage: UNK
     Dates: start: 202311
  49. SODIUM BICARBONATE [Concomitant]
     Active Substance: SODIUM BICARBONATE
     Dosage: UNK
     Dates: start: 202311
  50. METAMIZOLE SODIUM [Concomitant]
     Active Substance: METAMIZOLE SODIUM
     Dosage: UNK
     Dates: start: 2023
  51. PIPAMPERONE HYDROCHLORIDE [Concomitant]
     Active Substance: PIPAMPERONE HYDROCHLORIDE
     Dosage: UNK
     Dates: start: 2023
  52. FOLIC ACID [Concomitant]
     Active Substance: FOLIC ACID
     Dosage: UNK
     Dates: start: 2023

REACTIONS (2)
  - Influenza [Recovered/Resolved]
  - Nephrogenic anaemia [Unknown]

NARRATIVE: CASE EVENT DATE: 20240213
